FAERS Safety Report 9841314 (Version 2)
Quarter: 2014Q1

REPORT INFORMATION
  Report Type: Report from Study
  Country: AU (occurrence: AU)
  Receive Date: 20140124
  Receipt Date: 20140130
  Transmission Date: 20141002
  Serious: Yes (Other)
  Sender: FDA-Public Use
  Company Number: AU-SA-2014SA006107

PATIENT
  Sex: Male

DRUGS (13)
  1. LANTUS [Suspect]
     Indication: PRODUCT USED FOR UNKNOWN INDICATION
     Route: 058
     Dates: start: 20100101
  2. NOVORAPID [Concomitant]
  3. METOPROLOL [Concomitant]
  4. ASPIRIN [Concomitant]
  5. PLAVIX [Concomitant]
  6. EZETROL [Concomitant]
  7. ENDEP [Concomitant]
  8. PARIET [Concomitant]
  9. FISH OIL [Concomitant]
  10. STEMETIL [Concomitant]
  11. VALIUM [Concomitant]
  12. SERC [Concomitant]
  13. ATORVASTATIN [Concomitant]

REACTIONS (4)
  - Kidney infection [Not Recovered/Not Resolved]
  - Renal pain [Not Recovered/Not Resolved]
  - Neuropathy peripheral [Not Recovered/Not Resolved]
  - Glycosylated haemoglobin increased [Not Recovered/Not Resolved]
